FAERS Safety Report 10950996 (Version 2)
Quarter: 2015Q2

REPORT INFORMATION
  Report Type: Spontaneous
  Country: JP (occurrence: JP)
  Receive Date: 20150324
  Receipt Date: 20150508
  Transmission Date: 20150821
  Serious: Yes (Other)
  Sender: FDA-Public Use
  Company Number: JP-KERYX BIOPHARMACEUTICALS, INC.-2014JP000005

PATIENT

DRUGS (11)
  1. RIONA [Suspect]
     Active Substance: FERRIC CITRATE ANHYDROUS
     Indication: HYPERPHOSPHATAEMIA
     Dosage: 1500 MG, QD
     Route: 048
     Dates: start: 20140529, end: 20140602
  2. MOBIC [Concomitant]
     Active Substance: MELOXICAM
     Indication: CHONDROCALCINOSIS PYROPHOSPHATE
     Dosage: 10 MG, QD
     Route: 048
     Dates: start: 20140417
  3. TANKARU [Concomitant]
     Indication: HYPERPHOSPHATAEMIA
     Dosage: 1000 MG, TID
     Route: 048
     Dates: start: 20140206
  4. DIOVAN [Concomitant]
     Active Substance: VALSARTAN
     Indication: HYPERTENSION
     Dosage: 40 MG, QD
     Route: 048
     Dates: start: 20131128
  5. PROMAC                             /01312301/ [Concomitant]
     Active Substance: NITROFURANTOIN
     Indication: ZINC DEFICIENCY
     Dosage: 75 MG, QD
     Route: 048
     Dates: start: 20131221
  6. SHOSEIRYUTO                        /08000301/ [Concomitant]
     Indication: NASOPHARYNGITIS
     Dosage: 3 G, TID
     Route: 048
     Dates: start: 20140610, end: 20140611
  7. MAINTATE [Concomitant]
     Active Substance: BISOPROLOL FUMARATE
     Indication: HYPERTENSION
     Dosage: 0.625 MG, QD
     Route: 048
     Dates: start: 20131128
  8. MIRCERA [Concomitant]
     Active Substance: METHOXY POLYETHYLENE GLYCOL-EPOETIN BETA
     Route: 042
  9. THYRADIN S [Concomitant]
     Active Substance: LEVOTHYROXINE SODIUM
     Indication: HYPOTHYROIDISM
     Dosage: 75 MG, QD
     Route: 048
     Dates: start: 20131128
  10. TAKEPRON [Concomitant]
     Active Substance: LANSOPRAZOLE
     Indication: GASTROOESOPHAGEAL REFLUX DISEASE
     Dosage: 15 MG, QD
     Route: 065
     Dates: start: 20131128
  11. RIONA [Suspect]
     Active Substance: FERRIC CITRATE ANHYDROUS
     Dosage: 750 MG, TID
     Route: 048
     Dates: start: 20140603, end: 20140611

REACTIONS (4)
  - Faeces soft [Recovered/Resolved]
  - Hepatic function abnormal [Recovering/Resolving]
  - Abdominal distension [Recovered/Resolved]
  - Decreased appetite [Recovered/Resolved]

NARRATIVE: CASE EVENT DATE: 20140603
